FAERS Safety Report 4802096-1 (Version None)
Quarter: 2005Q4

REPORT INFORMATION
  Report Type: 
  Country: None (occurrence: None)
  Receive Date: 20051011
  Receipt Date: 20050926
  Transmission Date: 20060501
  Serious: Yes (Other)
  Sender: FDA-Public Use
  Company Number: 2005134484

PATIENT
  Sex: Male
  Weight: 91.6266 kg

DRUGS (8)
  1. VIAGRA [Suspect]
     Indication: ILL-DEFINED DISORDER
     Dosage: (PRN), ORAL
     Route: 048
  2. NORVASC [Concomitant]
  3. TARKA [Concomitant]
  4. FOLIC ACID [Concomitant]
  5. ASPIRIN [Concomitant]
  6. PLAVIX [Concomitant]
  7. TOPROL (METOPROLOL) [Concomitant]
  8. GLYCERYL TRINITRATE ( GLYCERYL TRINITRATE) [Concomitant]

REACTIONS (3)
  - LUNG NEOPLASM MALIGNANT [None]
  - NEOPLASM RECURRENCE [None]
  - PROSTATE CANCER [None]
